FAERS Safety Report 6148420-1 (Version None)
Quarter: 2009Q2

REPORT INFORMATION
  Report Type: 
  Country: None (occurrence: None)
  Receive Date: 20090406
  Receipt Date: 20090327
  Transmission Date: 20091009
  Serious: Yes (Life-Threatening, Hospitalization)
  Sender: FDA-Public Use
  Company Number: 2009SP006748

PATIENT
  Age: 48 Year
  Sex: Female

DRUGS (1)
  1. PEGATRON (PEGINTERFERON ALFA-2B W/RIBAVIRIN) (PEGYLATED INTERFERON ALF [Suspect]
     Indication: HEPATITIS C
     Dates: end: 20090204

REACTIONS (2)
  - CARDIAC ARREST [None]
  - MALAISE [None]
